FAERS Safety Report 5300739-X (Version None)
Quarter: 2007Q1

REPORT INFORMATION
  Report Type: 
  Country: None (occurrence: None)
  Receive Date: 20070201
  Receipt Date: 20061011
  Transmission Date: 20070707
  Serious: No
  Sender: FDA-Public Use
  Company Number: 2006PV022996

PATIENT
  Age: 66 Year
  Sex: Male

DRUGS (3)
  1. BYETTA [Suspect]
     Indication: DRUG USE FOR UNKNOWN INDICATION
     Dosage: 10 MCG; 5 MCG; BID; SC
     Route: 058
     Dates: start: 20060101, end: 20060101
  2. BYETTA [Suspect]
     Indication: DRUG USE FOR UNKNOWN INDICATION
     Dosage: 10 MCG; 5 MCG; BID; SC
     Route: 058
     Dates: start: 20060101
  3. GLUCOTROL [Concomitant]

REACTIONS (1)
  - BLOOD GLUCOSE INCREASED [None]
